FAERS Safety Report 5420974-X (Version None)
Quarter: 2007Q3

REPORT INFORMATION
  Report Type: 
  Country: None (occurrence: None)
  Receive Date: 20070821
  Receipt Date: 20070815
  Transmission Date: 20080115
  Serious: Yes (Hospitalization)
  Sender: FDA-Public Use
  Company Number: FR-MERCK-0708USA03008

PATIENT
  Age: 79 Year
  Sex: Male

DRUGS (2)
  1. BENEMID [Suspect]
     Indication: GOUT
     Route: 048
  2. BENEMID [Suspect]
     Route: 048

REACTIONS (4)
  - GLOMERULONEPHRITIS MEMBRANOUS [None]
  - NEPHROTIC SYNDROME [None]
  - PITTING OEDEMA [None]
  - WEIGHT INCREASED [None]
